FAERS Safety Report 13155682 (Version 1)
Quarter: 2017Q1

REPORT INFORMATION
  Report Type: Spontaneous
  Country: US (occurrence: US)
  Receive Date: 20170126
  Receipt Date: 20170126
  Transmission Date: 20170428
  Serious: No
  Sender: FDA-Public Use
  Company Number: US-ROCHE-GNE317254

PATIENT
  Age: 68 Year
  Sex: Female

DRUGS (3)
  1. HEPARIN [Suspect]
     Active Substance: HEPARIN SODIUM
     Indication: DEVICE OCCLUSION
  2. CATHFLO ACTIVASE [Suspect]
     Active Substance: ALTEPLASE
     Indication: DEVICE OCCLUSION
     Dosage: 1 MG/HR, UNK
     Route: 065
     Dates: start: 20110419
  3. CATHFLO ACTIVASE [Suspect]
     Active Substance: ALTEPLASE
     Dosage: 2 MG/HR, UNK
     Route: 065

REACTIONS (1)
  - Drug ineffective [Unknown]
